FAERS Safety Report 5257132-8 (Version None)
Quarter: 2007Q1

REPORT INFORMATION
  Report Type: 
  Country: None (occurrence: None)
  Receive Date: 20070307
  Receipt Date: 20070228
  Transmission Date: 20070707
  Serious: Yes (Hospitalization, Other)
  Sender: FDA-Public Use
  Company Number: 2007UW01652

PATIENT
  Age: 63 Year
  Sex: Female
  Weight: 70 kg

DRUGS (8)
  1. ROSUVASTATIN [Suspect]
     Indication: CARDIOVASCULAR EVENT PROPHYLAXIS
     Route: 048
     Dates: start: 20060629, end: 20061201
  2. OMEPRAZOLE [Concomitant]
     Indication: DYSPEPSIA
     Dosage: 20 MG QD/PRN
     Route: 048
     Dates: start: 20051018
  3. PREMARIN [Concomitant]
     Indication: ATROPHIC VULVOVAGINITIS
     Route: 061
     Dates: start: 19980902
  4. CALCIUM WITH VITAMIN D [Concomitant]
     Indication: OSTEOPENIA
     Dosage: 600-200 I.U.
     Route: 048
     Dates: start: 19980101
  5. OXYBUTYNIN [Concomitant]
     Indication: POLLAKIURIA
     Route: 048
     Dates: start: 19990526
  6. ZOLOFT [Concomitant]
     Indication: DEPRESSION
     Route: 048
     Dates: start: 19960101
  7. ATENOLOL [Concomitant]
     Indication: MIGRAINE
     Route: 048
     Dates: start: 19960101
  8. MAXALT [Concomitant]
     Indication: MIGRAINE
     Route: 048
     Dates: start: 20020101

REACTIONS (1)
  - EOSINOPHILIC PNEUMONIA CHRONIC [None]
